FAERS Safety Report 5941014-X (Version None)
Quarter: 2008Q4

REPORT INFORMATION
  Report Type: 
  Country: None (occurrence: None)
  Receive Date: 20081104
  Receipt Date: 20081030
  Transmission Date: 20090506
  Serious: Yes (Other)
  Sender: FDA-Public Use
  Company Number: PHEH2008US09795

PATIENT
  Sex: Female

DRUGS (1)
  1. TRILEPTAL [Suspect]
     Dosage: 600 MG, 1 TAB QAM, 2 TABS QPM

REACTIONS (1)
  - TONSILLECTOMY [None]
